FAERS Safety Report 5438109-6 (Version None)
Quarter: 2007Q3

REPORT INFORMATION
  Report Type: 
  Country: None (occurrence: None)
  Receive Date: 20070831
  Receipt Date: 20070816
  Transmission Date: 20080115
  Serious: No
  Sender: FDA-Public Use
  Company Number: A0660936A

PATIENT
  Age: 74 Year
  Sex: Female

DRUGS (1)
  1. ALLI [Suspect]
     Route: 048
     Dates: start: 20070619, end: 20070621

REACTIONS (5)
  - BLISTER [None]
  - OEDEMA PERIPHERAL [None]
  - PAIN [None]
  - PRURITUS GENERALISED [None]
  - URTICARIA [None]
